FAERS Safety Report 17912710 (Version 2)
Quarter: 2020Q3

REPORT INFORMATION
  Report Type: Spontaneous
  Country: US (occurrence: US)
  Receive Date: 20200618
  Receipt Date: 20200709
  Transmission Date: 20201103
  Serious: Yes (Hospitalization, Other)
  Sender: FDA-Public Use
  Company Number: US-GILEAD-2020-0472489

PATIENT
  Age: 29 Year
  Sex: Male

DRUGS (1)
  1. BIKTARVY [Suspect]
     Active Substance: BICTEGRAVIR SODIUM\EMTRICITABINE\TENOFOVIR ALAFENAMIDE FUMARATE
     Indication: CONGENITAL HIV INFECTION
     Dosage: UNK
     Route: 065

REACTIONS (2)
  - Blood lactic acid increased [Recovering/Resolving]
  - Renal tubular dysfunction [Unknown]
